FAERS Safety Report 15132242 (Version 2)
Quarter: 2018Q3

REPORT INFORMATION
  Report Type: Spontaneous
  Country: US (occurrence: US)
  Receive Date: 20180711
  Receipt Date: 20180712
  Transmission Date: 20181010
  Serious: No
  Sender: FDA-Public Use
  Company Number: US-BIOGEN-2018BI00603933

PATIENT
  Age: 73 Year
  Sex: Male

DRUGS (1)
  1. TECFIDERA [Suspect]
     Active Substance: DIMETHYL FUMARATE
     Indication: MULTIPLE SCLEROSIS
     Route: 048
     Dates: start: 20180605, end: 20180703

REACTIONS (7)
  - Nausea [Unknown]
  - Abdominal pain [Unknown]
  - Retching [Unknown]
  - Vomiting [Unknown]
  - Abdominal pain upper [Unknown]
  - Insomnia [Unknown]
  - Feeding disorder [Unknown]

NARRATIVE: CASE EVENT DATE: 20180630
